FAERS Safety Report 10075872 (Version 2)
Quarter: 2014Q2

REPORT INFORMATION
  Report Type: Report from Study
  Country: US (occurrence: US)
  Receive Date: 20140414
  Receipt Date: 20140416
  Transmission Date: 20141212
  Serious: Yes (Hospitalization)
  Sender: FDA-Public Use
  Company Number: US-SA-2014SA041520

PATIENT
  Age: 73 Year
  Sex: Male
  Weight: 74.7 kg

DRUGS (6)
  1. CABAZITAXEL [Suspect]
     Indication: PROSTATE CANCER
     Route: 042
     Dates: start: 20131202
  2. ANTINEOPLASTIC AGENTS [Suspect]
     Indication: PROSTATE CANCER
     Route: 065
  3. PREDNISONE [Concomitant]
     Indication: PROSTATE CANCER
     Route: 048
     Dates: start: 20131125
  4. ZOMETA [Concomitant]
     Indication: BONE DISORDER
     Dosage: 4 MG,1 IN 6 WK
     Route: 042
     Dates: start: 20120729
  5. GAVISCON [Concomitant]
     Indication: DYSPEPSIA
     Route: 048
     Dates: start: 20120207
  6. TUMS [Concomitant]
     Indication: DYSPEPSIA
     Route: 048
     Dates: start: 20120207

REACTIONS (3)
  - Syncope [Recovered/Resolved]
  - Orthostatic hypertension [Recovered/Resolved]
  - Headache [Recovered/Resolved]
